FAERS Safety Report 7028221-2 (Version None)
Quarter: 2010Q4

REPORT INFORMATION
  Report Type: 
  Country: None (occurrence: None)
  Receive Date: 20101005
  Receipt Date: 20100929
  Transmission Date: 20110411
  Serious: Yes (Other)
  Sender: FDA-Public Use
  Company Number: US-WYE-H17004510

PATIENT
  Sex: Male

DRUGS (2)
  1. TYGACIL [Suspect]
     Indication: ABDOMINAL INFECTION
     Dosage: UNKNOWN/3 DOSES
  2. TYGACIL [Suspect]
     Indication: ABDOMINAL WALL MASS

REACTIONS (1)
  - GUILLAIN-BARRE SYNDROME [None]
